FAERS Safety Report 19614421 (Version 1)
Quarter: 2021Q3

REPORT INFORMATION
  Report Type: Spontaneous
  Country: US (occurrence: US)
  Receive Date: 20210727
  Receipt Date: 20210727
  Transmission Date: 20211014
  Serious: No
  Sender: FDA-Public Use
  Company Number: US-PFIZER INC-2021476888

PATIENT
  Age: 54 Year
  Sex: Female

DRUGS (1)
  1. INLYTA [Suspect]
     Active Substance: AXITINIB
     Indication: OCULAR NEOPLASM
     Dosage: 5 MG

REACTIONS (2)
  - Off label use [Unknown]
  - Malaise [Unknown]
